FAERS Safety Report 15979603 (Version 1)
Quarter: 2019Q1

REPORT INFORMATION
  Report Type: Spontaneous
  Country: US (occurrence: US)
  Receive Date: 20190219
  Receipt Date: 20190219
  Transmission Date: 20190418
  Serious: No
  Sender: FDA-Public Use
  Company Number: US-PFIZER INC-2019071915

PATIENT
  Sex: Male

DRUGS (1)
  1. IBRANCE [Suspect]
     Active Substance: PALBOCICLIB
     Dosage: 125 MG, CYCLIC (ONE CAPSULE EVERY DAY, DAYS 1 TO 21 EVERY 28 DAYS)
     Route: 048
     Dates: start: 20160201

REACTIONS (5)
  - Product use issue [Unknown]
  - Muscle spasms [Unknown]
  - Fungal infection [Unknown]
  - Fungal skin infection [Unknown]
  - Asthenia [Unknown]

NARRATIVE: CASE EVENT DATE: 20160201
